FAERS Safety Report 5655852-4 (Version None)
Quarter: 2008Q1

REPORT INFORMATION
  Report Type: 
  Country: None (occurrence: None)
  Receive Date: 20080307
  Receipt Date: 20080226
  Transmission Date: 20080703
  Serious: Yes (Hospitalization)
  Sender: FDA-Public Use
  Company Number: ES-PFIZER INC-2008016949

PATIENT
  Sex: Female

DRUGS (4)
  1. CABERGOLINE [Suspect]
     Indication: PARKINSON'S DISEASE
  2. CARBIDOPA AND LEVODOPA [Concomitant]
  3. SELEGILINE HCL [Concomitant]
  4. ENTACAPONE [Concomitant]

REACTIONS (3)
  - AORTIC VALVE INCOMPETENCE [None]
  - CARDIAC FAILURE CONGESTIVE [None]
  - MITRAL VALVE INCOMPETENCE [None]
